FAERS Safety Report 11082634 (Version 2)
Quarter: 2015Q2

REPORT INFORMATION
  Report Type: Spontaneous
  Country: US (occurrence: US)
  Receive Date: 20150501
  Receipt Date: 20150611
  Transmission Date: 20150821
  Serious: No
  Sender: FDA-Public Use
  Company Number: US-PFIZER INC-2015143197

PATIENT
  Age: 50 Year
  Sex: Male
  Weight: 81.63 kg

DRUGS (1)
  1. GABAPENTIN. [Suspect]
     Active Substance: GABAPENTIN
     Dosage: 1200 MG, UNK
     Dates: start: 2011, end: 2013

REACTIONS (2)
  - Drug ineffective [Unknown]
  - Feeling abnormal [Unknown]
